FAERS Safety Report 7070227-1 (Version None)
Quarter: 2010Q4

REPORT INFORMATION
  Report Type: 
  Country: None (occurrence: None)
  Receive Date: 20101028
  Receipt Date: 20100914
  Transmission Date: 20110411
  Serious: No
  Sender: FDA-Public Use
  Company Number: US-WYE-H17525110

PATIENT
  Age: 79 Year
  Sex: Female
  Weight: 74.91 kg

DRUGS (5)
  1. ADVIL [Suspect]
     Indication: ARTHRALGIA
     Route: 048
     Dates: start: 20100701
  2. MULTI-VITAMINS [Concomitant]
  3. VITAMIN B COMPLEX CAP [Concomitant]
  4. GLUCOSAMINE [Concomitant]
  5. VITAMIN D [Concomitant]

REACTIONS (1)
  - CONSTIPATION [None]
